FAERS Safety Report 20748795 (Version 1)
Quarter: 2022Q2

REPORT INFORMATION
  Report Type: Spontaneous
  Country: US (occurrence: None)
  Receive Date: 20220426
  Receipt Date: 20220426
  Transmission Date: 20220720
  Serious: No
  Sender: FDA-Public Use
  Company Number: 2022A152402

PATIENT
  Age: 78 Year
  Sex: Female

DRUGS (1)
  1. FARXIGA [Suspect]
     Active Substance: DAPAGLIFLOZIN PROPANEDIOL
     Dosage: 10.0MG UNKNOWN
     Route: 048
     Dates: start: 20210804, end: 20210816

REACTIONS (3)
  - Dizziness [Recovering/Resolving]
  - Dizziness [Recovering/Resolving]
  - Rash [Recovering/Resolving]
